FAERS Safety Report 23427111 (Version 1)
Quarter: 2024Q1

REPORT INFORMATION
  Report Type: Spontaneous
  Country: FR (occurrence: FR)
  Receive Date: 20240122
  Receipt Date: 20240122
  Transmission Date: 20240410
  Serious: Yes (Other)
  Sender: FDA-Public Use
  Company Number: FR-ORGANON-O2401FRA001750

PATIENT
  Age: 70 Year
  Sex: Male

DRUGS (5)
  1. LIPTRUZET [Suspect]
     Active Substance: ATORVASTATIN CALCIUM\EZETIMIBE
     Dosage: UNK
     Route: 048
     Dates: start: 20231127
  2. LIPTRUZET [Suspect]
     Active Substance: ATORVASTATIN CALCIUM\EZETIMIBE
     Dosage: UNK
     Route: 048
     Dates: start: 20240115
  3. ASPIRIN [Concomitant]
     Active Substance: ASPIRIN
  4. IRBESARTAN [Concomitant]
     Active Substance: IRBESARTAN
  5. LERCANIDIPINE [Concomitant]
     Active Substance: LERCANIDIPINE

REACTIONS (5)
  - Syncope [Unknown]
  - Fall [Unknown]
  - Vision blurred [Unknown]
  - Pain [Unknown]
  - Malaise [Unknown]

NARRATIVE: CASE EVENT DATE: 20231101
